FAERS Safety Report 5486188-2 (Version None)
Quarter: 2007Q4

REPORT INFORMATION
  Report Type: 
  Country: None (occurrence: None)
  Receive Date: 20071005
  Receipt Date: 20070731
  Transmission Date: 20080405
  Serious: No
  Sender: FDA-Public Use
  Company Number: PHEH2007US10544

PATIENT
  Age: 73 Year
  Sex: Female

DRUGS (1)
  1. TEKTURNA [Suspect]
     Indication: HYPERTENSION
     Dosage: 150 MG, QD; ORAL
     Route: 048
     Dates: start: 20070621, end: 20070627

REACTIONS (3)
  - DIARRHOEA [None]
  - NASOPHARYNGITIS [None]
  - RASH [None]
